FAERS Safety Report 6998273-4 (Version None)
Quarter: 2010Q3

REPORT INFORMATION
  Report Type: 
  Country: None (occurrence: None)
  Receive Date: 20100920
  Receipt Date: 20100401
  Transmission Date: 20110219
  Serious: No
  Sender: FDA-Public Use
  Company Number: US-ASTRAZENECA-2010SE14440

PATIENT
  Sex: Female
  Weight: 73.9 kg

DRUGS (6)
  1. SEROQUEL [Suspect]
     Indication: INSOMNIA
     Route: 048
  2. FEMARA [Concomitant]
     Indication: NEOPLASM MALIGNANT
  3. SYNTHROID [Concomitant]
     Indication: HYPOTHYROIDISM
  4. LASIX [Concomitant]
     Indication: OEDEMA PERIPHERAL
  5. VIT D. [Concomitant]
     Dosage: 2000 UNITS DAILY
  6. FOLIC ACID [Concomitant]

REACTIONS (1)
  - FALL [None]
